FAERS Safety Report 5709419-X (Version None)
Quarter: 2008Q2

REPORT INFORMATION
  Report Type: 
  Country: None (occurrence: None)
  Receive Date: 20080418
  Receipt Date: 20080411
  Transmission Date: 20081010
  Serious: Yes (Hospitalization)
  Sender: FDA-Public Use
  Company Number: JP-ASTRAZENECA-2007AP05552

PATIENT
  Age: 74 Year
  Sex: Male
  Weight: 58 kg

DRUGS (6)
  1. IRESSA [Suspect]
     Indication: LUNG ADENOCARCINOMA
     Route: 048
     Dates: start: 20070815, end: 20070831
  2. CYANOCOBALAMIN [Concomitant]
     Route: 048
     Dates: start: 20070820
  3. GASTER D [Concomitant]
     Route: 048
     Dates: start: 20070820
  4. MAGLAX [Concomitant]
     Route: 048
     Dates: start: 20070820
  5. TEGRETOL [Concomitant]
     Route: 048
     Dates: start: 20070820
  6. CODEINE SUL TAB [Concomitant]
     Route: 048
     Dates: start: 20070820

REACTIONS (2)
  - INTERSTITIAL LUNG DISEASE [None]
  - LIVER DISORDER [None]
